FAERS Safety Report 20092973 (Version 1)
Quarter: 2021Q4

REPORT INFORMATION
  Report Type: Spontaneous
  Country: US (occurrence: US)
  Receive Date: 20211120
  Receipt Date: 20211120
  Transmission Date: 20220303
  Serious: Yes (Hospitalization, Other)
  Sender: FDA-Public Use
  Company Number: US-MLMSERVICE-20211104-3205000-1

PATIENT
  Age: 47 Year
  Sex: Female

DRUGS (12)
  1. METHOTREXATE [Suspect]
     Active Substance: METHOTREXATE
     Indication: Acute leukaemia
     Dosage: SINGLE DOSE ON DAY 17
  2. CYTARABINE [Suspect]
     Active Substance: CYTARABINE
     Indication: Acute leukaemia
     Dosage: 7+3 INDUCTION REGIMEN OF DAUNORUBICIN AND CYTARABINE BEGAN ON DAY 3
     Route: 037
  3. DAUNORUBICIN [Suspect]
     Active Substance: DAUNORUBICIN
     Indication: Acute leukaemia
     Dosage: 7+3 INDUCTION REGIMEN OF DAUNORUBICIN AND CYTARABINE
  4. HYDROXYUREA [Suspect]
     Active Substance: HYDROXYUREA
     Indication: Acute leukaemia
     Dosage: ON DAY ONE AFTER ADMISSION
  5. MELATONIN [Concomitant]
     Active Substance: MELATONIN
  6. MAGNESIUM [Concomitant]
     Active Substance: MAGNESIUM
     Indication: Supplementation therapy
  7. OXYCODONE [Concomitant]
     Active Substance: OXYCODONE
  8. POTASSIUM [Concomitant]
     Active Substance: POTASSIUM
     Indication: Supplementation therapy
  9. BENZONATATE [Concomitant]
     Active Substance: BENZONATATE
  10. CHLORHEXIDINE GLUCONATE [Concomitant]
     Active Substance: CHLORHEXIDINE GLUCONATE
  11. DIPHENHYDRAMINE [Concomitant]
     Active Substance: DIPHENHYDRAMINE
  12. ACETAMINOPHEN [Concomitant]
     Active Substance: ACETAMINOPHEN

REACTIONS (4)
  - Purpura [Recovered/Resolved]
  - Haemorrhage [Recovered/Resolved]
  - Palmar erythema [Recovered/Resolved]
  - Angiokeratoma [Recovered/Resolved]
